FAERS Safety Report 16596942 (Version 6)
Quarter: 2022Q1

REPORT INFORMATION
  Report Type: Spontaneous
  Country: US (occurrence: US)
  Receive Date: 20190719
  Receipt Date: 20220316
  Transmission Date: 20220424
  Serious: Yes (Hospitalization, Other)
  Sender: FDA-Public Use
  Company Number: US-GILEAD-2019-0418469

PATIENT
  Age: 45 Year
  Sex: Male
  Weight: 59 kg

DRUGS (41)
  1. TRUVADA [Suspect]
     Active Substance: EMTRICITABINE\TENOFOVIR DISOPROXIL FUMARATE
     Indication: HIV infection
     Dosage: UNK
     Route: 048
     Dates: start: 2008, end: 20181205
  2. STRIBILD [Suspect]
     Active Substance: COBICISTAT\ELVITEGRAVIR\EMTRICITABINE\TENOFOVIR DISOPROXIL FUMARATE
     Indication: HIV infection
     Dosage: UNK
     Route: 048
     Dates: start: 201411, end: 20150303
  3. ATRIPLA [Suspect]
     Active Substance: EFAVIRENZ\EMTRICITABINE\TENOFOVIR DISOPROXIL FUMARATE
     Indication: HIV infection
     Dosage: UNK
     Route: 065
  4. DESCOVY [Concomitant]
     Active Substance: EMTRICITABINE\TENOFOVIR ALAFENAMIDE FUMARATE
  5. ACETAMINOPHEN [Concomitant]
     Active Substance: ACETAMINOPHEN
  6. AMITRIPTYLINE [Concomitant]
     Active Substance: AMITRIPTYLINE
  7. BACTRIM [Concomitant]
     Active Substance: SULFAMETHOXAZOLE\TRIMETHOPRIM
  8. CORTISONE [Concomitant]
     Active Substance: CORTISONE
  9. DEPAKOTE [Concomitant]
     Active Substance: DIVALPROEX SODIUM
  10. MORNIFLUMATE [Concomitant]
     Active Substance: MORNIFLUMATE
  11. LEVOFLOXACIN [Concomitant]
     Active Substance: LEVOFLOXACIN
  12. NORVIR [Concomitant]
     Active Substance: RITONAVIR
  13. REYATAZ [Concomitant]
     Active Substance: ATAZANAVIR SULFATE
  14. TIVICAY [Concomitant]
     Active Substance: DOLUTEGRAVIR SODIUM
  15. TRIUMEQ [Concomitant]
     Active Substance: ABACAVIR SULFATE\DOLUTEGRAVIR SODIUM\LAMIVUDINE
  16. HYDROCHLOROTHIAZIDE [Concomitant]
     Active Substance: HYDROCHLOROTHIAZIDE
  17. TYLENOL [Concomitant]
     Active Substance: ACETAMINOPHEN
  18. NICOTINE [Concomitant]
     Active Substance: NICOTINE
  19. MYLANTA [Concomitant]
     Active Substance: ALUMINUM HYDROXIDE\DIMETHICONE\MAGNESIUM HYDROXIDE
  20. SODIUM PICOSULFATE [Concomitant]
     Active Substance: SODIUM PICOSULFATE
  21. CEFAZOLIN [Concomitant]
     Active Substance: CEFAZOLIN
  22. COLACE [Concomitant]
     Active Substance: DOCUSATE SODIUM
  23. FERROUS SULFATE [Concomitant]
     Active Substance: FERROUS SULFATE
  24. MORPHINE [Concomitant]
     Active Substance: MORPHINE
  25. ZOFRAN [Concomitant]
     Active Substance: ONDANSETRON HYDROCHLORIDE
  26. AMBIEN [Concomitant]
     Active Substance: ZOLPIDEM TARTRATE
  27. PHENERGAN [DIBROMPROPAMIDINE ISETIONATE;PROMETHAZINE HYDROCHLORIDE] [Concomitant]
  28. DOCUSATE SODIUM [Concomitant]
     Active Substance: DOCUSATE SODIUM
  29. CIPROFLOXACIN [Concomitant]
     Active Substance: CIPROFLOXACIN
  30. PROMETHAZINE [Concomitant]
     Active Substance: PROMETHAZINE HYDROCHLORIDE
  31. ACETAMINOPHEN AND CODEINE [Concomitant]
     Active Substance: ACETAMINOPHEN\CODEINE PHOSPHATE
  32. AMOXICILLIN [Concomitant]
     Active Substance: AMOXICILLIN
  33. AZITHROMYCIN [Concomitant]
     Active Substance: AZITHROMYCIN
  34. PENICILLIN G [Concomitant]
     Active Substance: PENICILLIN G
  35. SULFAMETHOXAZOLE\TRIMETHOPRIM [Concomitant]
     Active Substance: SULFAMETHOXAZOLE\TRIMETHOPRIM
  36. OXYBUTYNIN [Concomitant]
     Active Substance: OXYBUTYNIN
  37. AMLODIPINE [Concomitant]
     Active Substance: AMLODIPINE BESYLATE
  38. BUPROPION [Concomitant]
     Active Substance: BUPROPION
  39. MELOXICAM [Concomitant]
     Active Substance: MELOXICAM
  40. LOSARTAN [Concomitant]
     Active Substance: LOSARTAN
  41. LISINOPRIL [Concomitant]
     Active Substance: LISINOPRIL

REACTIONS (20)
  - Osteonecrosis [Not Recovered/Not Resolved]
  - Avulsion fracture [Recovered/Resolved]
  - Osteoporosis [Not Recovered/Not Resolved]
  - Femoral neck fracture [Unknown]
  - Knee arthroplasty [Not Recovered/Not Resolved]
  - Multiple fractures [Not Recovered/Not Resolved]
  - Hip arthroplasty [Not Recovered/Not Resolved]
  - Bone density decreased [Not Recovered/Not Resolved]
  - Bone loss [Not Recovered/Not Resolved]
  - Osteopenia [Not Recovered/Not Resolved]
  - Osteoarthritis [Not Recovered/Not Resolved]
  - Emotional distress [Not Recovered/Not Resolved]
  - Anxiety [Not Recovered/Not Resolved]
  - Anhedonia [Not Recovered/Not Resolved]
  - Economic problem [Not Recovered/Not Resolved]
  - Vitamin D deficiency [Unknown]
  - Back pain [Unknown]
  - Pain [Not Recovered/Not Resolved]
  - Gait disturbance [Not Recovered/Not Resolved]
  - Mobility decreased [Not Recovered/Not Resolved]

NARRATIVE: CASE EVENT DATE: 20080921
